FAERS Safety Report 8196095-2 (Version None)
Quarter: 2012Q1

REPORT INFORMATION
  Report Type: 
  Country: None (occurrence: None)
  Receive Date: 20120309
  Receipt Date: 20120305
  Transmission Date: 20120608
  Serious: Yes (Other)
  Sender: FDA-Public Use
  Company Number: US-SP-2011-12306

PATIENT
  Sex: Female
  Weight: 73 kg

DRUGS (2)
  1. TUBERSOL [Suspect]
     Route: 023
     Dates: start: 20111004, end: 20111004
  2. TUBERSOL [Suspect]
     Indication: TUBERCULIN TEST
     Route: 023
     Dates: start: 20111028, end: 20111028

REACTIONS (11)
  - INFLAMMATION [None]
  - INJECTION SITE STREAKING [None]
  - SKIN WARM [None]
  - HYPOAESTHESIA [None]
  - PERIPHERAL COLDNESS [None]
  - LOCALISED OEDEMA [None]
  - ERYTHEMA [None]
  - THROMBOPHLEBITIS SUPERFICIAL [None]
  - CELLULITIS [None]
  - PHLEBITIS [None]
  - SENSORY DISTURBANCE [None]
